FAERS Safety Report 18451030 (Version 1)
Quarter: 2020Q4

REPORT INFORMATION
  Report Type: Spontaneous
  Country: US (occurrence: US)
  Receive Date: 20201101
  Receipt Date: 20201101
  Transmission Date: 20210114
  Serious: Yes (Other)
  Sender: FDA-Public Use
  Company Number: US-009507513-2010USA009253

PATIENT
  Sex: Female

DRUGS (10)
  1. FASLODEX [Suspect]
     Active Substance: FULVESTRANT
     Dosage: 2 UNK
     Dates: start: 2011
  2. METFORMIN [Concomitant]
     Active Substance: METFORMIN HYDROCHLORIDE
     Dosage: 500 MILLIGRAM, QD
     Dates: end: 2012
  3. IBRANCE [Suspect]
     Active Substance: PALBOCICLIB
     Indication: LUNG NEOPLASM MALIGNANT
     Dosage: 75 UNK
     Route: 048
     Dates: start: 2020, end: 202009
  4. METFORMIN [Concomitant]
     Active Substance: METFORMIN HYDROCHLORIDE
     Indication: DIABETES MELLITUS
     Dosage: UNK, BID
     Dates: start: 2012
  5. IBRANCE [Suspect]
     Active Substance: PALBOCICLIB
     Indication: BREAST CANCER
     Dosage: 100 MILLIGRAM. ONE TABLET DAILY BY MOUTH FOR 3 WEEKS AND OFF FOR ONE WEEK
     Route: 048
     Dates: start: 202009
  6. ARIMIDEX [Suspect]
     Active Substance: ANASTROZOLE
     Dosage: UNK
     Dates: start: 2003
  7. TAMOXIFEN [Suspect]
     Active Substance: TAMOXIFEN
  8. PRINIVIL [Suspect]
     Active Substance: LISINOPRIL
     Dosage: UNK
     Dates: start: 2003, end: 2012
  9. FASLODEX [Suspect]
     Active Substance: FULVESTRANT
     Dosage: 1 UNK
     Dates: start: 2011
  10. SYNTHROID [Concomitant]
     Active Substance: LEVOTHYROXINE SODIUM
     Dosage: 0.25 MICROGRAM, QD
     Route: 048

REACTIONS (8)
  - Diabetes mellitus [Unknown]
  - Saliva altered [Not Recovered/Not Resolved]
  - Blood cholesterol increased [Unknown]
  - Breast cancer stage IV [Not Recovered/Not Resolved]
  - Lung neoplasm malignant [Not Recovered/Not Resolved]
  - Cough [Not Recovered/Not Resolved]
  - Hypothyroidism [Unknown]
  - Hypertension [Unknown]

NARRATIVE: CASE EVENT DATE: 2003
